FAERS Safety Report 7975822-0 (Version None)
Quarter: 2011Q4

REPORT INFORMATION
  Report Type: 
  Country: None (occurrence: None)
  Receive Date: 20111213
  Receipt Date: 20110922
  Transmission Date: 20120403
  Serious: No
  Sender: FDA-Public Use
  Company Number: US-AMGEN-USASP2011048988

PATIENT
  Age: 88 Year
  Sex: Male

DRUGS (1)
  1. ENBREL [Suspect]
     Indication: SPONDYLITIS
     Dosage: 50 MG, QWK
     Dates: start: 20100315

REACTIONS (4)
  - OEDEMA PERIPHERAL [None]
  - FATIGUE [None]
  - PAIN IN EXTREMITY [None]
  - INCORRECT DOSE ADMINISTERED [None]
